FAERS Safety Report 17090529 (Version 1)
Quarter: 2019Q4

REPORT INFORMATION
  Report Type: Spontaneous
  Country: US (occurrence: US)
  Receive Date: 20191129
  Receipt Date: 20191129
  Transmission Date: 20200122
  Serious: No
  Sender: FDA-Public Use
  Company Number: US-UCBSA-2018019005

PATIENT
  Age: 37 Year
  Sex: Female

DRUGS (3)
  1. CIMZIA [Suspect]
     Active Substance: CERTOLIZUMAB PEGOL
     Indication: CROHN^S DISEASE
  2. CIMZIA [Suspect]
     Active Substance: CERTOLIZUMAB PEGOL
     Indication: OFF LABEL USE
     Dosage: 400 MG, EV 4 WEEKS
     Route: 058
     Dates: start: 20171010
  3. CIMZIA [Suspect]
     Active Substance: CERTOLIZUMAB PEGOL
     Indication: RASH PAPULOSQUAMOUS
     Dosage: STARTED 9 YEARS AGO

REACTIONS (5)
  - Injection site bruising [Unknown]
  - Maternal exposure before pregnancy [Unknown]
  - Psoriasis [Unknown]
  - Injection site swelling [Unknown]
  - Off label use [Unknown]

NARRATIVE: CASE EVENT DATE: 20171012
